FAERS Safety Report 18308098 (Version 3)
Quarter: 2020Q4

REPORT INFORMATION
  Report Type: Spontaneous
  Country: US (occurrence: US)
  Receive Date: 20200924
  Receipt Date: 20201005
  Transmission Date: 20210113
  Serious: Yes (Hospitalization, Other)
  Sender: FDA-Public Use
  Company Number: US-TAKEDA-2020TUS039972

PATIENT
  Sex: Male
  Weight: 83 kg

DRUGS (1)
  1. BRIGATINIB [Suspect]
     Active Substance: BRIGATINIB
     Indication: LUNG ADENOCARCINOMA
     Dosage: 180 MILLIGRAM
     Route: 065
     Dates: start: 202007, end: 20200904

REACTIONS (3)
  - Lung adenocarcinoma [Unknown]
  - Drug ineffective [Unknown]
  - Pneumonia [Unknown]
